FAERS Safety Report 4941004-X (Version None)
Quarter: 2006Q1

REPORT INFORMATION
  Report Type: 
  Country: None (occurrence: None)
  Receive Date: 20060307
  Receipt Date: 20060301
  Transmission Date: 20060701
  Serious: Yes (Hospitalization)
  Sender: FDA-Public Use
  Company Number: T06-USA-00793-01

PATIENT
  Age: 73 Year
  Sex: Male
  Weight: 97.0698 kg

DRUGS (10)
  1. ESCITALOPRAM (OPEN-LABEL) (ESCITALOPRAM) [Suspect]
     Indication: DEMENTIA
     Dosage: 10 MG QD PO
     Route: 048
     Dates: start: 20060120
  2. ESCITALOPRAM (OPEN-LABEL) (ESCITALOPRAM) [Suspect]
     Indication: MAJOR DEPRESSION
     Dosage: 10 MG QD PO
     Route: 048
     Dates: start: 20060120
  3. PLACEBO (SINGLE-BLIND) (PLACEBO) [Suspect]
     Indication: DEMENTIA
     Dosage: 1 CAPSULE QD PO
     Route: 048
     Dates: start: 20060106, end: 20060120
  4. PLACEBO (SINGLE-BLIND) (PLACEBO) [Suspect]
     Indication: MAJOR DEPRESSION
     Dosage: 1 CAPSULE QD PO
     Route: 048
     Dates: start: 20060106, end: 20060120
  5. ASPIRIN [Suspect]
     Indication: RHEUMATOID ARTHRITIS
     Dosage: 650 MG BID PO
     Route: 048
     Dates: end: 20060222
  6. FUROSEMIDE [Concomitant]
  7. LIPITOR [Concomitant]
  8. POTASSIUM [Concomitant]
  9. DIOVAN [Concomitant]
  10. PREVACID [Concomitant]

REACTIONS (1)
  - DIVERTICULITIS INTESTINAL HAEMORRHAGIC [None]
